FAERS Safety Report 8314252-9 (Version None)
Quarter: 2012Q2

REPORT INFORMATION
  Report Type: 
  Country: None (occurrence: None)
  Receive Date: 20120426
  Receipt Date: 20120423
  Transmission Date: 20120825
  Serious: Yes (Hospitalization)
  Sender: FDA-Public Use
  Company Number: PHHY2012IT034682

PATIENT
  Sex: Female

DRUGS (3)
  1. DANAZOL [Concomitant]
  2. CYCLOSPORINE [Concomitant]
     Indication: IMMUNOSUPPRESSION
  3. LEVOFLOXACIN [Suspect]
     Indication: SINUSITIS
     Dosage: 1 POSOLOGIC UNIT
     Route: 048
     Dates: start: 20120308, end: 20120315

REACTIONS (3)
  - VOMITING [None]
  - BRAIN OEDEMA [None]
  - HEADACHE [None]
